FAERS Safety Report 5759634-4 (Version None)
Quarter: 2008Q2

REPORT INFORMATION
  Report Type: 
  Country: None (occurrence: None)
  Receive Date: 20080605
  Receipt Date: 20080530
  Transmission Date: 20081010
  Serious: Yes (Other)
  Sender: FDA-Public Use
  Company Number: US-BAYER-200812008BCC

PATIENT
  Age: 95 Year
  Sex: Female
  Weight: 52 kg

DRUGS (1)
  1. ASPIRIN [Suspect]
     Indication: CARDIOVASCULAR EVENT PROPHYLAXIS
     Route: 048

REACTIONS (1)
  - GASTRIC HAEMORRHAGE [None]
